FAERS Safety Report 6791069-8 (Version None)
Quarter: 2010Q2

REPORT INFORMATION
  Report Type: 
  Country: None (occurrence: None)
  Receive Date: 20100623
  Receipt Date: 20100623
  Transmission Date: 20101027
  Serious: Yes (Hospitalization)
  Sender: FDA-Public Use
  Company Number: None

PATIENT
  Sex: Female
  Weight: 70 kg

DRUGS (15)
  1. VINORELBINE [Suspect]
     Indication: BREAST CANCER METASTATIC
     Dosage: 20MG/M2 = 35.2MG WEEKLY IV BOLUS
     Route: 040
     Dates: start: 20100602, end: 20100609
  2. SORAFENIB 200MG [Suspect]
     Indication: BREAST CANCER METASTATIC
     Dosage: 200MG BID PO
     Route: 048
     Dates: start: 20100602, end: 20100621
  3. ATIVAN-LORAZEPA [Concomitant]
  4. COMPAZINE [Concomitant]
  5. MEGACE [Concomitant]
  6. METHADONE [Concomitant]
  7. NIFEDICAL [Concomitant]
  8. NORCO - HYDROCODONE/ ACETAMINOPHEN- [Concomitant]
  9. OXYCONTIN [Concomitant]
  10. STOOL SOFTNER [Concomitant]
  11. TEKTURNA HCT [Concomitant]
  12. VICODIN -ACETAMINOPHEN [Concomitant]
  13. HYDROCODONE [Concomitant]
  14. ZOFRAN [Concomitant]
  15. ZOMETA [Concomitant]

REACTIONS (5)
  - CONDITION AGGRAVATED [None]
  - DIARRHOEA [None]
  - FAECAL INCONTINENCE [None]
  - HALLUCINATION [None]
  - PAIN [None]
